FAERS Safety Report 8992084 (Version 3)
Quarter: 2013Q2

REPORT INFORMATION
  Report Type: Spontaneous
  Country: US (occurrence: US)
  Receive Date: 20121231
  Receipt Date: 20130412
  Transmission Date: 20140414
  Serious: No
  Sender: FDA-Public Use
  Company Number: US-009507513-1212USA009928

PATIENT
  Age: 8 Year
  Sex: Female
  Weight: 34.92 kg

DRUGS (1)
  1. ASMANEX TWISTHALER [Suspect]
     Indication: ASTHMA
     Dosage: 2 PUFFS DAILY AT NIGHT
     Route: 048
     Dates: start: 20111111

REACTIONS (4)
  - Drug dose omission [Unknown]
  - Product container issue [Unknown]
  - No adverse event [Unknown]
  - Incorrect route of drug administration [Unknown]
